FAERS Safety Report 12743205 (Version 1)
Quarter: 2016Q3

REPORT INFORMATION
  Report Type: Report from Study
  Country: DE (occurrence: DE)
  Receive Date: 20160914
  Receipt Date: 20160914
  Transmission Date: 20161109
  Serious: Yes (Hospitalization)
  Sender: FDA-Public Use
  Company Number: DE-BIOGEN-2015BI040782

PATIENT
  Age: 53 Year
  Sex: Female
  Weight: 81 kg

DRUGS (1)
  1. TECFIDERA [Suspect]
     Active Substance: DIMETHYL FUMARATE
     Indication: RELAPSING-REMITTING MULTIPLE SCLEROSIS
     Route: 048
     Dates: start: 20140628, end: 201608

REACTIONS (5)
  - Muscle spasms [Not Recovered/Not Resolved]
  - Progressive multiple sclerosis [Unknown]
  - Pubis fracture [Recovered/Resolved with Sequelae]
  - Sensory disturbance [Not Recovered/Not Resolved]
  - Muscle spasticity [Not Recovered/Not Resolved]

NARRATIVE: CASE EVENT DATE: 20141101
